FAERS Safety Report 4506333-2 (Version None)
Quarter: 2004Q4

REPORT INFORMATION
  Report Type: 
  Country: None (occurrence: None)
  Receive Date: 20041025
  Receipt Date: 20031126
  Transmission Date: 20050328
  Serious: Yes (Other)
  Sender: FDA-Public Use
  Company Number: US-JNJFOC-20031200099

PATIENT
  Age: 61 Year
  Sex: Male
  Weight: 68.4932 kg

DRUGS (6)
  1. REMICADE [Suspect]
     Indication: RHEUMATOID ARTHRITIS
     Dosage: 300 MG, INTRAVENOUS
     Route: 042
     Dates: start: 20010101
  2. REMICADE [Suspect]
     Indication: RHEUMATOID ARTHRITIS
     Dosage: 300 MG, INTRAVENOUS
     Route: 042
     Dates: start: 20031006
  3. PREDNISONE [Concomitant]
  4. ARAVA [Concomitant]
  5. NAPROSYN (NAPROSYN) [Concomitant]
  6. TYLENOL [Concomitant]

REACTIONS (1)
  - COCCIDIOIDOMYCOSIS [None]
